FAERS Safety Report 14332720 (Version 1)
Quarter: 2017Q4

REPORT INFORMATION
  Report Type: Spontaneous
  Country: US (occurrence: US)
  Receive Date: 20171228
  Receipt Date: 20171228
  Transmission Date: 20180321
  Serious: Yes (Death, Hospitalization, Other)
  Sender: FDA-Public Use
  Company Number: US-APOTEX-2017AP023574

PATIENT
  Age: 41 Year
  Sex: Female

DRUGS (12)
  1. ALCOHOL. [Suspect]
     Active Substance: ALCOHOL
     Dosage: INHALATION
     Route: 045
  2. ALCOHOL. [Suspect]
     Active Substance: ALCOHOL
     Indication: PRODUCT USED FOR UNKNOWN INDICATION
     Dosage: UNK(INGST + INHL + PAR)
     Route: 050
  3. CARBON MONOXIDE [Suspect]
     Active Substance: CARBON MONOXIDE
     Dosage: UNK
     Route: 051
  4. ALCOHOL. [Suspect]
     Active Substance: ALCOHOL
     Dosage: UNK
     Route: 051
  5. OXYMORPHONE [Suspect]
     Active Substance: OXYMORPHONE
     Indication: PRODUCT USED FOR UNKNOWN INDICATION
     Dosage: UNK(INGST + INHL + PAR)
     Route: 050
  6. CARBON MONOXIDE [Suspect]
     Active Substance: CARBON MONOXIDE
     Dosage: INHALATION
     Route: 045
  7. FENTANYL. [Suspect]
     Active Substance: FENTANYL
     Indication: PRODUCT USED FOR UNKNOWN INDICATION
     Dosage: UNK (INGST + INHL + PAR)
     Route: 050
  8. FENTANYL. [Suspect]
     Active Substance: FENTANYL
     Dosage: UNK
     Route: 051
  9. OXYMORPHONE [Suspect]
     Active Substance: OXYMORPHONE
     Dosage: UNK
     Route: 051
  10. CARBON MONOXIDE [Suspect]
     Active Substance: CARBON MONOXIDE
     Indication: PRODUCT USED FOR UNKNOWN INDICATION
     Dosage: UNK(INGST + INHL + PAR)
     Route: 050
  11. FENTANYL. [Suspect]
     Active Substance: FENTANYL
     Dosage: INHALATION
     Route: 045
  12. OXYMORPHONE [Suspect]
     Active Substance: OXYMORPHONE
     Dosage: INHALATION
     Route: 045

REACTIONS (2)
  - Cardio-respiratory arrest [Fatal]
  - Intentional product use issue [Fatal]
